FAERS Safety Report 13187388 (Version 1)
Quarter: 2017Q1

REPORT INFORMATION
  Report Type: Spontaneous
  Country: US (occurrence: US)
  Receive Date: 20170206
  Receipt Date: 20170206
  Transmission Date: 20170428
  Serious: No
  Sender: FDA-Public Use
  Company Number: ALCN2017US001149

PATIENT
  Sex: Male

DRUGS (1)
  1. BRIMONIDINE [Suspect]
     Active Substance: BRIMONIDINE TARTRATE
     Indication: INTRAOCULAR PRESSURE INCREASED
     Dosage: 1 GTT, UNK
     Route: 047

REACTIONS (1)
  - Visual acuity reduced [Recovering/Resolving]
